FAERS Safety Report 7764543-5 (Version None)
Quarter: 2011Q3

REPORT INFORMATION
  Report Type: 
  Country: None (occurrence: None)
  Receive Date: 20110921
  Receipt Date: 20110914
  Transmission Date: 20111222
  Serious: Yes (Other)
  Sender: FDA-Public Use
  Company Number: CA-PFIZER INC-2011217077

PATIENT
  Age: 47 Year
  Sex: Male

DRUGS (3)
  1. ALPHAGAN [Concomitant]
     Indication: GLAUCOMA
     Dosage: 1 GTT IN BOTH EYES, 2X/DAY
  2. XALATAN [Suspect]
     Indication: GLAUCOMA
     Dosage: 1 GTT IN BOTH EYES, DAILY
     Route: 047
     Dates: start: 19950101
  3. COSOPT [Concomitant]
     Indication: GLAUCOMA
     Dosage: 1 GTT IN BOTH EYES, 2X/DAY

REACTIONS (2)
  - EYE LASER SURGERY [None]
  - INTRAOCULAR PRESSURE INCREASED [None]
